FAERS Safety Report 5856439-0 (Version None)
Quarter: 2008Q3

REPORT INFORMATION
  Report Type: 
  Country: None (occurrence: None)
  Receive Date: 20080822
  Receipt Date: 20080822
  Transmission Date: 20090109
  Serious: Yes (Disabling)
  Sender: FDA-Public Use
  Company Number: None

PATIENT
  Age: 78 Year
  Sex: Male
  Weight: 68.0396 kg

DRUGS (2)
  1. LIPITOR [Suspect]
  2. SIMVASTATIN [Suspect]

REACTIONS (3)
  - AMNESIA [None]
  - ANOREXIA [None]
  - WEIGHT DECREASED [None]
